FAERS Safety Report 5823790-X (Version None)
Quarter: 2008Q3

REPORT INFORMATION
  Report Type: 
  Country: None (occurrence: None)
  Receive Date: 20080725
  Receipt Date: 20080722
  Transmission Date: 20090109
  Serious: Yes (Life-Threatening, Hospitalization)
  Sender: FDA-Public Use
  Company Number: FR-ABBOTT-08P-056-0464466-01

PATIENT
  Sex: Male
  Weight: 78 kg

DRUGS (4)
  1. RITONAVIR SOFT GELATIN CAPSULES [Suspect]
     Indication: HIV INFECTION
     Route: 048
     Dates: end: 20071207
  2. RITONAVIR SOFT GELATIN CAPSULES [Suspect]
  3. TMC125 (BLINDED) [Concomitant]
     Indication: HIV INFECTION
     Dates: end: 20071207
  4. PREZISTA [Concomitant]
     Indication: HIV INFECTION
     Dates: end: 20071207

REACTIONS (2)
  - LIVER TRANSPLANT [None]
  - NUTRITIONAL SUPPORT [None]
